FAERS Safety Report 15811649 (Version 1)
Quarter: 2019Q1

REPORT INFORMATION
  Report Type: Spontaneous
  Country: US (occurrence: US)
  Receive Date: 20190111
  Receipt Date: 20190111
  Transmission Date: 20190417
  Serious: No
  Sender: FDA-Public Use
  Company Number: US-PFIZER INC-2019009890

PATIENT
  Age: 75 Year
  Sex: Female
  Weight: 55.79 kg

DRUGS (1)
  1. ADVIL LIQUI-GELS [Suspect]
     Active Substance: IBUPROFEN
     Indication: PAIN IN EXTREMITY
     Dosage: 200 MG, AS NEEDED (NOT ALWAYS TAKE IT EVERY 6 HOURS BUT I NEVER TAKE IT MORE THAN 6 HOURS APART)
     Route: 048
     Dates: start: 20181220, end: 20181220

REACTIONS (1)
  - Somnolence [Recovered/Resolved]

NARRATIVE: CASE EVENT DATE: 20181220
